FAERS Safety Report 24091156 (Version 1)
Quarter: 2024Q3

REPORT INFORMATION
  Report Type: Spontaneous
  Country: GB (occurrence: GB)
  Receive Date: 20240715
  Receipt Date: 20240715
  Transmission Date: 20241016
  Serious: Yes (Other)
  Sender: TEVA
  Company Number: None

PATIENT
  Age: 70 Year
  Sex: Male
  Weight: 122 kg

DRUGS (1)
  1. IRBESARTAN [Suspect]
     Active Substance: IRBESARTAN
     Indication: Hypertension
     Dates: end: 20240505

REACTIONS (7)
  - Chest discomfort [Unknown]
  - Pain in jaw [Unknown]
  - Ear pain [Unknown]
  - Dysgeusia [Unknown]
  - Pain in extremity [Unknown]
  - Chest pain [Recovering/Resolving]
  - Neck pain [Unknown]

NARRATIVE: CASE EVENT DATE: 20240302
